FAERS Safety Report 5059516-X (Version None)
Quarter: 2006Q3

REPORT INFORMATION
  Report Type: 
  Country: None (occurrence: None)
  Receive Date: 20060724
  Receipt Date: 20050620
  Transmission Date: 20061208
  Serious: Yes (Hospitalization)
  Sender: FDA-Public Use
  Company Number: US-AMGEN-KDL139668

PATIENT
  Sex: Male

DRUGS (22)
  1. PROCRIT [Suspect]
     Indication: RENAL FAILURE CHRONIC
     Dates: start: 20050301, end: 20050610
  2. MEDICINALPRODUCT NOT SPECIFIED BY SENDER [Concomitant]
  3. MEDICINALPRODUCT NOT SPECIFIED BY SENDER [Concomitant]
  4. MEDICINALPRODUCT NOT SPECIFIED BY SENDER [Concomitant]
  5. MEDICINALPRODUCT NOT SPECIFIED BY SENDER [Concomitant]
  6. MEDICINALPRODUCT NOT SPECIFIED BY SENDER [Concomitant]
     Route: 060
  7. MEDICINALPRODUCT NOT SPECIFIED BY SENDER [Concomitant]
  8. MEDICINALPRODUCT NOT SPECIFIED BY SENDER [Concomitant]
  9. MEDICINALPRODUCT NOT SPECIFIED BY SENDER [Concomitant]
     Route: 048
  10. MEDICINALPRODUCT NOT SPECIFIED BY SENDER [Concomitant]
  11. MEDICINALPRODUCT NOT SPECIFIED BY SENDER [Concomitant]
  12. MEDICINALPRODUCT NOT SPECIFIED BY SENDER [Concomitant]
  13. MEDICINALPRODUCT NOT SPECIFIED BY SENDER [Concomitant]
  14. MEDICINALPRODUCT NOT SPECIFIED BY SENDER [Concomitant]
  15. MEDICINALPRODUCT NOT SPECIFIED BY SENDER [Concomitant]
  16. MEDICINALPRODUCT NOT SPECIFIED BY SENDER [Concomitant]
  17. MEDICINALPRODUCT NOT SPECIFIED BY SENDER [Concomitant]
  18. MEDICINALPRODUCT NOT SPECIFIED BY SENDER [Concomitant]
  19. MEDICINALPRODUCT NOT SPECIFIED BY SENDER [Concomitant]
  20. MEDICINALPRODUCT NOT SPECIFIED BY SENDER [Concomitant]
  21. MEDICINALPRODUCT NOT SPECIFIED BY SENDER [Concomitant]
  22. MEDICINALPRODUCT NOT SPECIFIED BY SENDER [Concomitant]

REACTIONS (2)
  - HYPERSENSITIVITY [None]
  - PRURITUS [None]
